FAERS Safety Report 9729697 (Version 2)
Quarter: 2015Q3

REPORT INFORMATION
  Report Type: Spontaneous
  Country: US (occurrence: US)
  Receive Date: 20131204
  Receipt Date: 20150804
  Transmission Date: 20151125
  Serious: No
  Sender: FDA-Public Use
  Company Number: US-GILEAD-2009-0020990

PATIENT
  Age: 62 Year
  Sex: Female
  Weight: 78.02 kg

DRUGS (3)
  1. AVITA 0.25% GEL [Concomitant]
  2. LITHIUM CARBONATE. [Concomitant]
     Active Substance: LITHIUM CARBONATE
  3. LETAIRIS [Suspect]
     Active Substance: AMBRISENTAN
     Indication: PULMONARY ARTERIAL HYPERTENSION
     Route: 048
     Dates: start: 20090204, end: 200903

REACTIONS (5)
  - Decreased appetite [Recovering/Resolving]
  - Liver function test abnormal [Unknown]
  - Feeling jittery [Recovering/Resolving]
  - Skin irritation [Recovering/Resolving]
  - Weight decreased [Unknown]
